FAERS Safety Report 11186089 (Version 1)
Quarter: 2015Q2

REPORT INFORMATION
  Report Type: Spontaneous
  Country: CH (occurrence: CH)
  Receive Date: 20150612
  Receipt Date: 20150612
  Transmission Date: 20150821
  Serious: Yes (Hospitalization)
  Sender: FDA-Public Use
  Company Number: CH-ELI_LILLY_AND_COMPANY-CH201506001182

PATIENT
  Sex: Female
  Weight: 46.5 kg

DRUGS (18)
  1. TRITTICO [Concomitant]
     Active Substance: TRAZODONE HYDROCHLORIDE
     Dosage: 300 MG, EACH EVENING
     Route: 048
     Dates: start: 2010
  2. SUMATRIPTAN. [Concomitant]
     Active Substance: SUMATRIPTAN
     Indication: MIGRAINE
     Dosage: UNK
     Route: 058
     Dates: start: 2005
  3. DULCOLAX                           /00362801/ [Concomitant]
     Indication: GASTROINTESTINAL DISORDER
     Dosage: 2.5 MG, UNK
     Route: 048
  4. GUTRON [Concomitant]
     Active Substance: MIDODRINE
     Indication: HYPOTENSION
     Dosage: 2.5 MG, EACH MORNING
     Route: 048
  5. SPASMO CANULASE [Concomitant]
     Indication: GASTROINTESTINAL DISORDER
     Dosage: UNK
     Route: 048
  6. DAFALGAN [Concomitant]
     Active Substance: ACETAMINOPHEN
     Indication: PAIN MANAGEMENT
     Dosage: 1 G, UNK
     Route: 048
  7. ARCOXIA [Concomitant]
     Active Substance: ETORICOXIB
     Indication: PAIN MANAGEMENT
     Dosage: 60 MG, UNK
     Route: 048
  8. ZOMIG [Concomitant]
     Active Substance: ZOLMITRIPTAN
     Indication: MIGRAINE
     Dosage: 5 MG, UNK
     Route: 045
  9. PRIMPERAN [Concomitant]
     Active Substance: METOCLOPRAMIDE HYDROCHLORIDE
     Indication: GASTROINTESTINAL DISORDER
     Dosage: 20 MG, UNK
     Route: 054
     Dates: start: 2005
  10. FLUCTINE [Suspect]
     Active Substance: FLUOXETINE HYDROCHLORIDE
     Indication: DEPRESSION
     Dosage: 20 MG, UNKNOWN
     Route: 048
  11. PALEXIA [Concomitant]
     Active Substance: TAPENTADOL HYDROCHLORIDE
     Indication: PAIN MANAGEMENT
     Dosage: 100 MG, UNK
     Route: 048
     Dates: start: 2010
  12. MEFENAMIC-ACID [Concomitant]
     Active Substance: MEFENAMIC ACID
     Indication: PAIN MANAGEMENT
     Dosage: 500 MG, UNK
     Route: 048
  13. OMEPRAZOLE. [Concomitant]
     Active Substance: OMEPRAZOLE
     Dosage: 40 MG, QD
     Route: 048
  14. TOPAMAX [Suspect]
     Active Substance: TOPIRAMATE
     Indication: MIGRAINE
     Dosage: 50 MG, BID
     Route: 048
     Dates: start: 2005
  15. TEMESTA                            /00273201/ [Concomitant]
     Active Substance: LORAZEPAM
     Dosage: 2.5 MG, EACH EVENING
     Route: 048
     Dates: start: 2004
  16. DUSPATALIN                         /00139402/ [Concomitant]
     Indication: GASTROINTESTINAL DISORDER
     Dosage: 200 MG, UNK
     Route: 048
  17. LAXOBERON [Concomitant]
     Active Substance: SODIUM PICOSULFATE
     Indication: GASTROINTESTINAL DISORDER
     Dosage: UNK
     Route: 048
  18. VITAMIN D3 BON [Concomitant]
     Indication: VITAMIN D DEFICIENCY
     Dosage: 4 GTT, QD
     Route: 048

REACTIONS (4)
  - Abnormal loss of weight [Not Recovered/Not Resolved]
  - Depression [Unknown]
  - Malnutrition [Not Recovered/Not Resolved]
  - Vitamin D deficiency [Not Recovered/Not Resolved]

NARRATIVE: CASE EVENT DATE: 2005
